FAERS Safety Report 5970850-9 (Version None)
Quarter: 2008Q4

REPORT INFORMATION
  Report Type: 
  Country: None (occurrence: None)
  Receive Date: 20081127
  Receipt Date: 20081112
  Transmission Date: 20090506
  Serious: Yes (Life-Threatening, Hospitalization)
  Sender: FDA-Public Use
  Company Number: US-BRISTOL-MYERS SQUIBB COMPANY-14393607

PATIENT
  Age: 67 Year
  Sex: Female
  Weight: 97 kg

DRUGS (9)
  1. CETUXIMAB [Suspect]
     Indication: NON-SMALL CELL LUNG CANCER METASTATIC
     Dosage: THERAPY STARTED ON 09-NOV-2007, INTERRUPTED ON 25-APR-2007, RESTARTED 10-MAY-2007.
     Route: 042
     Dates: start: 20070419, end: 20070419
  2. TAXOTERE [Suspect]
     Indication: NON-SMALL CELL LUNG CANCER METASTATIC
     Dosage: THERAPY STARTED ON 09-NOV-2007.
     Route: 042
     Dates: start: 20070222, end: 20070222
  3. DEXAMETHASONE [Concomitant]
     Route: 048
  4. DILAUDID [Concomitant]
     Indication: PAIN
     Dosage: DRUG TAKEN AS 2MG Q3-4H.
     Route: 048
  5. FENTANYL [Concomitant]
     Route: 062
  6. HYDROCHLOROTHIAZIDE [Concomitant]
     Route: 048
  7. NORVASC [Concomitant]
     Route: 048
  8. PROTONIX [Concomitant]
     Route: 048
  9. REGLAN [Concomitant]
     Indication: NAUSEA
     Dosage: 20MG Q4-6H PRN PO.
     Route: 048

REACTIONS (2)
  - DEEP VEIN THROMBOSIS [None]
  - PULMONARY EMBOLISM [None]
